FAERS Safety Report 5413263-0 (Version None)
Quarter: 2007Q3

REPORT INFORMATION
  Report Type: 
  Country: None (occurrence: None)
  Receive Date: 20070810
  Receipt Date: 20070726
  Transmission Date: 20080115
  Serious: Yes (Other)
  Sender: FDA-Public Use
  Company Number: 2007SP009359

PATIENT
  Age: 59 Year
  Sex: Female
  Weight: 68 kg

DRUGS (2)
  1. CLARITIN [Suspect]
     Indication: MULTIPLE ALLERGIES
     Dosage: 1 DF;QD;PO
     Route: 048
     Dates: start: 20060831, end: 20060902
  2. IBUPROFEN [Concomitant]

REACTIONS (2)
  - HYPERTENSION [None]
  - SINUS TACHYCARDIA [None]
